FAERS Safety Report 16498002 (Version 2)
Quarter: 2019Q3

REPORT INFORMATION
  Report Type: Spontaneous
  Country: US (occurrence: US)
  Receive Date: 20190628
  Receipt Date: 20190719
  Transmission Date: 20191004
  Serious: Yes (Other)
  Sender: FDA-Public Use
  Company Number: US-LUNDBECK-DKLU3000014

PATIENT
  Age: 67 Year
  Sex: Male

DRUGS (5)
  1. NORTHERA [Suspect]
     Active Substance: DROXIDOPA
     Indication: SYNCOPE
     Route: 048
  2. NORTHERA [Suspect]
     Active Substance: DROXIDOPA
     Indication: ORTHOSTATIC HYPOTENSION
     Route: 048
     Dates: start: 20190524
  3. NORTHERA [Suspect]
     Active Substance: DROXIDOPA
     Indication: PARKINSON^S DISEASE
     Dosage: TITRATION B
     Route: 048
  4. NORTHERA [Suspect]
     Active Substance: DROXIDOPA
     Indication: DIZZINESS
  5. NORTHERA [Suspect]
     Active Substance: DROXIDOPA
     Indication: MULTIPLE SYSTEM ATROPHY

REACTIONS (7)
  - Drug ineffective [Unknown]
  - Product dose omission [Unknown]
  - Loss of consciousness [Unknown]
  - Nightmare [Unknown]
  - Fall [Unknown]
  - Dizziness [Unknown]
  - Circadian rhythm sleep disorder [Unknown]

NARRATIVE: CASE EVENT DATE: 201906
